FAERS Safety Report 17757993 (Version 3)
Quarter: 2020Q2

REPORT INFORMATION
  Report Type: Report from Study
  Country: US (occurrence: US)
  Receive Date: 20200507
  Receipt Date: 20200622
  Transmission Date: 20200714
  Serious: Yes (Hospitalization)
  Sender: FDA-Public Use
  Company Number: US-EISAI MEDICAL RESEARCH-EC-2020-068257

PATIENT
  Age: 65 Year
  Sex: Female
  Weight: 70 kg

DRUGS (3)
  1. LENVIMA [Suspect]
     Active Substance: LENVATINIB
     Route: 048
     Dates: start: 20200204, end: 2020
  2. LENVIMA [Suspect]
     Active Substance: LENVATINIB
     Indication: HEPATOCELLULAR CARCINOMA
     Route: 048
     Dates: start: 20191228, end: 20200203
  3. LENVIMA [Suspect]
     Active Substance: LENVATINIB
     Route: 048
     Dates: start: 2020, end: 2020

REACTIONS (15)
  - Diarrhoea [Recovered/Resolved]
  - Oral pain [Recovering/Resolving]
  - Fatigue [Not Recovered/Not Resolved]
  - Hypertension [Recovered/Resolved]
  - Oral discomfort [Not Recovered/Not Resolved]
  - Dry skin [Recovering/Resolving]
  - Weight decreased [Not Recovered/Not Resolved]
  - Nausea [Not Recovered/Not Resolved]
  - Abdominal pain [Not Recovered/Not Resolved]
  - Gallbladder disorder [Not Recovered/Not Resolved]
  - Asthenia [Not Recovered/Not Resolved]
  - Vomiting [Not Recovered/Not Resolved]
  - Memory impairment [Not Recovered/Not Resolved]
  - Tumour pain [Not Recovered/Not Resolved]
  - Dry mouth [Not Recovered/Not Resolved]

NARRATIVE: CASE EVENT DATE: 20191228
